FAERS Safety Report 8202509-1 (Version None)
Quarter: 2012Q1

REPORT INFORMATION
  Report Type: 
  Country: None (occurrence: None)
  Receive Date: 20120227
  Receipt Date: 20120117
  Transmission Date: 20120608
  Serious: No
  Sender: FDA-Public Use
  Company Number: 343271

PATIENT
  Sex: Female

DRUGS (3)
  1. GLIMEPIRIDE [Suspect]
  2. VICTOZA [Suspect]
     Indication: PRODUCT USED FOR UNKNOWN INDICATION
     Dosage: 0.6 MG, QD, SUBCUTANEOUS
     Route: 058
     Dates: start: 20110101
  3. METFORMIN HCL [Suspect]

REACTIONS (3)
  - BLISTER [None]
  - URTICARIA [None]
  - BLOOD GLUCOSE INCREASED [None]
